FAERS Safety Report 18972473 (Version 5)
Quarter: 2022Q3

REPORT INFORMATION
  Report Type: Report from Study
  Country: US (occurrence: US)
  Receive Date: 20210305
  Receipt Date: 20220905
  Transmission Date: 20221026
  Serious: Yes (Other)
  Sender: FDA-Public Use
  Company Number: NVSC2021US044619

PATIENT
  Age: 49 Year
  Sex: Male

DRUGS (1)
  1. GILENYA [Suspect]
     Active Substance: FINGOLIMOD HYDROCHLORIDE
     Indication: Relapsing-remitting multiple sclerosis
     Dosage: 0.5 MG, QD
     Route: 048
     Dates: start: 20130930

REACTIONS (10)
  - Blindness [Unknown]
  - Multiple sclerosis relapse [Unknown]
  - Heat exhaustion [Unknown]
  - Asthenia [Unknown]
  - Neoplasm [Unknown]
  - Fatigue [Unknown]
  - Hypoaesthesia [Unknown]
  - Neuritis [Unknown]
  - Visual impairment [Unknown]
  - Musculoskeletal stiffness [Unknown]

NARRATIVE: CASE EVENT DATE: 20130930
